FAERS Safety Report 7578197-4 (Version None)
Quarter: 2011Q2

REPORT INFORMATION
  Report Type: 
  Country: None (occurrence: None)
  Receive Date: 20110628
  Receipt Date: 20110607
  Transmission Date: 20111010
  Serious: Yes (Congenital Anomaly)
  Sender: FDA-Public Use
  Company Number: A0933240A

PATIENT
  Sex: Female

DRUGS (3)
  1. PAXIL [Suspect]
     Indication: DEPRESSION
     Dosage: 30MG PER DAY
     Route: 064
     Dates: end: 20020701
  2. KLONOPIN [Concomitant]
     Indication: DEPRESSION
     Dosage: .5MG TWICE PER DAY
     Route: 064
     Dates: start: 20020101
  3. EFFEXOR XR [Concomitant]
     Indication: DEPRESSION
     Route: 064
     Dates: start: 20020701

REACTIONS (3)
  - CARDIAC MURMUR [None]
  - DRUG EXPOSURE DURING PREGNANCY [None]
  - MATERNAL DRUGS AFFECTING FOETUS [None]
